FAERS Safety Report 6093164-8 (Version None)
Quarter: 2009Q1

REPORT INFORMATION
  Report Type: 
  Country: None (occurrence: None)
  Receive Date: 20090226
  Receipt Date: 20090220
  Transmission Date: 20090719
  Serious: Yes (Other)
  Sender: FDA-Public Use
  Company Number: US-ELI_LILLY_AND_COMPANY-US200811001753

PATIENT
  Sex: Male
  Weight: 80.726 kg

DRUGS (7)
  1. BYETTA [Suspect]
     Indication: TYPE 2 DIABETES MELLITUS
     Dosage: 5 UG, 2/D
     Route: 058
     Dates: start: 20060503
  2. BYETTA [Suspect]
     Dosage: 10 UG, 2/D
     Route: 058
     Dates: end: 20080901
  3. GLUCOVANCE [Concomitant]
     Dosage: UNK, 3/D
     Route: 048
  4. ZOCOR [Concomitant]
     Dosage: UNK, UNKNOWN
     Route: 048
  5. AVAPRO [Concomitant]
     Dosage: UNK, UNKNOWN
     Route: 048
  6. ASPIRIN [Concomitant]
     Dosage: UNK, UNKNOWN
     Route: 048
  7. FISH OIL [Concomitant]
     Dosage: UNK, UNKNOWN
     Route: 048

REACTIONS (2)
  - PANCREATITIS ACUTE [None]
  - WEIGHT DECREASED [None]
